FAERS Safety Report 12388178 (Version 1)
Quarter: 2016Q2

REPORT INFORMATION
  Report Type: Spontaneous
  Country: US (occurrence: None)
  Receive Date: 20160519
  Receipt Date: 20160519
  Transmission Date: 20160815
  Serious: Yes (Disabling, Other)
  Sender: FDA-Public Use
  Company Number: None

PATIENT
  Age: 43 Year
  Sex: Male
  Weight: 113.4 kg

DRUGS (2)
  1. LEVOFLOXACIN, 500 MG AUROBINDO PHARMACY [Suspect]
     Active Substance: LEVOFLOXACIN
     Indication: ADENOIDITIS
     Dosage: 14 TABLET(S) ONCE A DAY TAKEN BY MOUTH
     Route: 048
     Dates: start: 20160513, end: 20160514
  2. DYMISITA [Concomitant]

REACTIONS (5)
  - Impaired work ability [None]
  - Pain [None]
  - Plantar fasciitis [None]
  - Paraesthesia [None]
  - Tendon pain [None]

NARRATIVE: CASE EVENT DATE: 20160514
